FAERS Safety Report 23593412 (Version 1)
Quarter: 2024Q1

REPORT INFORMATION
  Report Type: Spontaneous
  Country: CA (occurrence: CA)
  Receive Date: 20240304
  Receipt Date: 20240304
  Transmission Date: 20240409
  Serious: Yes (Death, Life-Threatening, Hospitalization, Disabling, Other)
  Sender: FDA-Public Use
  Company Number: CA-009507513-2402CAN010079

PATIENT
  Age: 44 Year
  Sex: Female

DRUGS (41)
  1. EMEND [Suspect]
     Active Substance: APREPITANT
  2. SIMPONI [Suspect]
     Active Substance: GOLIMUMAB
  3. REMICADE [Suspect]
     Active Substance: INFLIXIMAB
  4. APREPITANT [Suspect]
     Active Substance: APREPITANT
  5. ACETAMINOPHEN [Suspect]
     Active Substance: ACETAMINOPHEN
  6. ACTEMRA [Suspect]
     Active Substance: TOCILIZUMAB
  7. ADALIMUMAB [Suspect]
     Active Substance: ADALIMUMAB\ISOPROPYL ALCOHOL
  8. ALENDRONIC ACID [Suspect]
     Active Substance: ALENDRONIC ACID
  9. PREDNISONE [Suspect]
     Active Substance: PREDNISONE
  10. APREMILAST [Suspect]
     Active Substance: APREMILAST
  11. ARAVA [Suspect]
     Active Substance: LEFLUNOMIDE
  12. ASACOL [Suspect]
     Active Substance: MESALAMINE
  13. CALCIUM CARBONATE [Suspect]
     Active Substance: CALCIUM CARBONATE
  14. CALCIUM GLUBIONATE [Suspect]
     Active Substance: CALCIUM GLUBIONATE
  15. CELEBREX [Suspect]
     Active Substance: CELECOXIB
  16. CELECOXIB [Suspect]
     Active Substance: CELECOXIB
  17. CERTOLIZUMAB PEGOL [Suspect]
     Active Substance: CERTOLIZUMAB PEGOL
  18. CETIRIZINE HYDROCHLORIDE [Suspect]
     Active Substance: CETIRIZINE HYDROCHLORIDE
  19. CHLORAPREP [Suspect]
     Active Substance: CHLORHEXIDINE GLUCONATE\ISOPROPYL ALCOHOL
  20. CHLORHEXIDINE [Suspect]
     Active Substance: CHLORHEXIDINE\CHLORHEXIDINE GLUCONATE
  21. CHLORHEXIDINE GLUCONATE [Suspect]
     Active Substance: CHLORHEXIDINE GLUCONATE
  22. CHOLECALCIFEROL [Suspect]
     Active Substance: CHOLECALCIFEROL
  23. CIMZIA [Suspect]
     Active Substance: CERTOLIZUMAB PEGOL
  24. CORTISONE ACETATE [Suspect]
     Active Substance: CORTISONE ACETATE
  25. COSENTYX [Suspect]
     Active Substance: SECUKINUMAB
  26. DESOXIMETASONE [Suspect]
     Active Substance: DESOXIMETASONE
  27. DICLOFENAC [Suspect]
     Active Substance: DICLOFENAC
  28. DILTIAZEM [Suspect]
     Active Substance: DILTIAZEM
  29. ENBREL [Suspect]
     Active Substance: ETANERCEPT
  30. ENTYVIO [Suspect]
     Active Substance: VEDOLIZUMAB
  31. FOLIC ACID [Suspect]
     Active Substance: FOLIC ACID
  32. FOSAMAX [Suspect]
     Active Substance: ALENDRONATE SODIUM
  33. HUMIRA [Suspect]
     Active Substance: ADALIMUMAB
  34. HYDROCORTISONE [Suspect]
     Active Substance: HYDROCORTISONE
  35. HYDROXYCHLOROQUINE [Suspect]
     Active Substance: HYDROXYCHLOROQUINE
  36. INFLIXIMAB [Suspect]
     Active Substance: INFLIXIMAB
  37. KEVZARA [Suspect]
     Active Substance: SARILUMAB
  38. LEFLUNOMIDE [Suspect]
     Active Substance: LEFLUNOMIDE
  39. LISINOPRIL [Suspect]
     Active Substance: LISINOPRIL
  40. LYRICA [Suspect]
     Active Substance: PREGABALIN
  41. METHOTREXATE [Suspect]
     Active Substance: METHOTREXATE

REACTIONS (11)
  - Osteoporosis [Fatal]
  - Off label use [Fatal]
  - Pneumonia [Fatal]
  - Prescribed underdose [Fatal]
  - Pulmonary fibrosis [Fatal]
  - Red blood cell sedimentation rate increased [Fatal]
  - Retinitis [Fatal]
  - Tachycardia [Fatal]
  - Therapeutic product effect incomplete [Fatal]
  - Thrombocytopenia [Fatal]
  - Visual impairment [Fatal]
